FAERS Safety Report 8272986-9 (Version None)
Quarter: 2012Q2

REPORT INFORMATION
  Report Type: 
  Country: None (occurrence: None)
  Receive Date: 20120406
  Receipt Date: 20120406
  Transmission Date: 20120825
  Serious: Yes (Other)
  Sender: FDA-Public Use
  Company Number: None

PATIENT
  Sex: Male
  Weight: 83.9154 kg

DRUGS (1)
  1. FINASTERIDE [Suspect]
     Indication: PROSTATIC DISORDER
     Dosage: 5 MG 1 PER DAY TBLT
     Dates: start: 20110509

REACTIONS (2)
  - MAMMOGRAM ABNORMAL [None]
  - BREAST PAIN [None]
